FAERS Safety Report 20566915 (Version 2)
Quarter: 2022Q1

REPORT INFORMATION
  Report Type: Spontaneous
  Country: US (occurrence: US)
  Receive Date: 20220308
  Receipt Date: 20220311
  Transmission Date: 20220423
  Serious: Yes (Other)
  Sender: FDA-Public Use
  Company Number: US-JNJFOC-20220309732

PATIENT
  Age: 59 Year
  Sex: Female
  Weight: 81.65 kg

DRUGS (8)
  1. IBUPROFEN [Suspect]
     Active Substance: IBUPROFEN
     Indication: Pain
     Route: 065
  2. ACETAMINOPHEN [Suspect]
     Active Substance: ACETAMINOPHEN
     Indication: Pain
     Route: 065
  3. ASPIRIN [Suspect]
     Active Substance: ASPIRIN
     Indication: Pain
     Route: 065
  4. COVID-19 VACCINE [Concomitant]
     Indication: Immunisation
     Dosage: 1ST DOSE ADMINISTERED IN LEFT ARM
     Route: 065
     Dates: start: 20210324
  5. COVID-19 VACCINE [Concomitant]
     Dosage: ADMINISTERED IN THE LEFT ARM AT 10:00.
     Route: 065
     Dates: start: 20210415
  6. TRAMADOL [Concomitant]
     Active Substance: TRAMADOL
     Indication: Headache
     Dosage: BEGAN TAKING IT IN 2009-2010
     Route: 065
  7. OXYCODONE [Concomitant]
     Active Substance: OXYCODONE
     Indication: Headache
     Route: 065
  8. FENTANYL TRANSDERMAL SYSTEM [Concomitant]
     Active Substance: FENTANYL
     Indication: Headache
     Route: 065

REACTIONS (1)
  - Anaphylactic reaction [Unknown]
